FAERS Safety Report 15323895 (Version 1)
Quarter: 2018Q3

REPORT INFORMATION
  Report Type: Spontaneous
  Country: US (occurrence: US)
  Receive Date: 20180828
  Receipt Date: 20180828
  Transmission Date: 20181010
  Serious: No
  Sender: FDA-Public Use
  Company Number: US-TEVA-805540ACC

PATIENT
  Sex: Female

DRUGS (2)
  1. ALENDRONATE SODIUM. [Suspect]
     Active Substance: ALENDRONATE SODIUM
     Indication: BONE DISORDER
     Dosage: 70 (UNITS UNSPECIFIED)
  2. LEVOTHYROXINE. [Concomitant]
     Active Substance: LEVOTHYROXINE

REACTIONS (6)
  - Wrong technique in product usage process [Unknown]
  - Abdominal discomfort [Not Recovered/Not Resolved]
  - Product use issue [Unknown]
  - Breast pain [Not Recovered/Not Resolved]
  - Product physical issue [Unknown]
  - Product blister packaging issue [Unknown]
